FAERS Safety Report 25028546 (Version 1)
Quarter: 2025Q1

REPORT INFORMATION
  Report Type: Spontaneous
  Country: GB (occurrence: GB)
  Receive Date: 20250302
  Receipt Date: 20250302
  Transmission Date: 20250409
  Serious: Yes (Hospitalization, Other)
  Sender: AUROBINDO
  Company Number: GB-MHRA-MED-202502132239084850-ZPDVY

PATIENT
  Age: 35 Year
  Sex: Female
  Weight: 73 kg

DRUGS (5)
  1. NAPROXEN [Suspect]
     Active Substance: NAPROXEN
     Indication: Intervertebral disc protrusion
     Dosage: 500 MILLIGRAM, TWO TIMES A DAY (500MG TWICE A DAY)
     Route: 065
     Dates: start: 20221123, end: 20221128
  2. CODEINE [Concomitant]
     Active Substance: CODEINE
     Indication: Back pain
     Route: 065
     Dates: start: 20221123, end: 20221125
  3. DIAZEPAM [Concomitant]
     Active Substance: DIAZEPAM
     Indication: Muscle spasms
     Route: 065
     Dates: start: 20221123, end: 20221124
  4. MORPHINE SULFATE [Concomitant]
     Active Substance: MORPHINE SULFATE
     Indication: Back pain
     Route: 065
     Dates: start: 20221123, end: 20221125
  5. ACETAMINOPHEN [Concomitant]
     Active Substance: ACETAMINOPHEN
     Indication: Back pain
     Route: 065
     Dates: start: 20221118, end: 20221128

REACTIONS (1)
  - Cerebrovascular accident [Recovered/Resolved]

NARRATIVE: CASE EVENT DATE: 20221126
